FAERS Safety Report 23448668 (Version 1)
Quarter: 2024Q1

REPORT INFORMATION
  Report Type: Spontaneous
  Country: US (occurrence: US)
  Receive Date: 20240127
  Receipt Date: 20240127
  Transmission Date: 20240409
  Serious: Yes (Life-Threatening, Other)
  Sender: FDA-Public Use
  Company Number: US-MLMSERVICE-2024011047657821

PATIENT
  Age: 3 Decade
  Sex: Female

DRUGS (6)
  1. METHOTREXATE [Suspect]
     Active Substance: METHOTREXATE
     Indication: Astrocytoma malignant
     Route: 037
  2. TOPOTECAN [Suspect]
     Active Substance: TOPOTECAN HYDROCHLORIDE
     Indication: Astrocytoma malignant
     Route: 037
  3. CYTARABINE [Suspect]
     Active Substance: CYTARABINE
     Indication: Astrocytoma malignant
     Route: 037
  4. THIOTEPA [Suspect]
     Active Substance: THIOTEPA
     Indication: Astrocytoma malignant
     Route: 037
  5. COBIMETINIB [Suspect]
     Active Substance: COBIMETINIB
     Indication: Astrocytoma malignant
  6. VEMURAFENIB [Suspect]
     Active Substance: VEMURAFENIB
     Indication: Astrocytoma malignant

REACTIONS (6)
  - Vomiting [Unknown]
  - Dermatitis acneiform [Unknown]
  - Anaemia [Unknown]
  - Neutropenia [Unknown]
  - Nausea [Unknown]
  - Off label use [Unknown]
